FAERS Safety Report 9702206 (Version 1)
Quarter: 2013Q4

REPORT INFORMATION
  Report Type: Spontaneous
  Country: US (occurrence: FR)
  Receive Date: 20131121
  Receipt Date: 20131121
  Transmission Date: 20140711
  Serious: Yes (Hospitalization)
  Sender: FDA-Public Use
  Company Number: PHHY2013FR133520

PATIENT
  Age: 83 Year
  Sex: Female

DRUGS (11)
  1. TEGRETOL LP [Suspect]
     Indication: TRIGEMINAL NEURALGIA
     Dosage: 200 MG QD
     Route: 048
     Dates: end: 20130902
  2. TEGRETOL LP [Suspect]
     Dosage: UNK UKN, UNK
     Dates: start: 20130909
  3. INEXIUM//ESOMEPRAZOLE MAGNESIUM [Concomitant]
     Dosage: UNK UKN, UNK
  4. SPECIAFOLDINE [Concomitant]
     Dosage: UNK UKN, UNK
  5. APROVEL [Concomitant]
     Dosage: UNK UKN, UNK
  6. CACIT VITAMIN D3 [Concomitant]
     Dosage: UNK UKN, UNK
  7. FORLAX [Concomitant]
     Dosage: UNK UKN, UNK
  8. GAVISCON                                /GFR/ [Concomitant]
     Dosage: UNK UKN, UNK
  9. STILNOX [Concomitant]
     Dosage: UNK UKN, UNK
  10. XALATAN [Concomitant]
     Dosage: UNK UKN, UNK
  11. SPIRIVA [Concomitant]
     Dosage: UNK UKN, UNK

REACTIONS (2)
  - General physical health deterioration [Not Recovered/Not Resolved]
  - Hyponatraemia [Recovered/Resolved]
